FAERS Safety Report 9411714 (Version 2)
Quarter: 2014Q2

REPORT INFORMATION
  Report Type: Spontaneous
  Country: CH (occurrence: CH)
  Receive Date: 20130722
  Receipt Date: 20140414
  Transmission Date: 20141212
  Serious: Yes (Hospitalization)
  Sender: FDA-Public Use
  Company Number: CH-JNJFOC-20130709568

PATIENT
  Age: 74 Year
  Sex: Male

DRUGS (9)
  1. XARELTO [Suspect]
     Indication: CEREBROVASCULAR ACCIDENT PROPHYLAXIS
     Route: 048
     Dates: start: 20130413, end: 20130603
  2. XARELTO [Suspect]
     Indication: ATRIAL FIBRILLATION
     Route: 048
     Dates: start: 20130413, end: 20130603
  3. XARELTO [Suspect]
     Indication: ATRIAL FLUTTER
     Route: 048
     Dates: start: 20130413, end: 20130603
  4. METOPROLOL [Concomitant]
     Route: 048
  5. DIGOXIN [Concomitant]
     Route: 065
  6. JANUMET [Concomitant]
     Route: 065
  7. TORASEMID [Concomitant]
     Route: 065
  8. ALDACTONE [Concomitant]
     Route: 065
  9. APROVEL [Concomitant]
     Route: 048

REACTIONS (2)
  - Jaundice hepatocellular [Recovered/Resolved]
  - Hepatocellular injury [Recovered/Resolved]
